FAERS Safety Report 8941655 (Version 2)
Quarter: 2012Q4

REPORT INFORMATION
  Report Type: 
  Country: IL (occurrence: IL)
  Receive Date: 20121203
  Receipt Date: 20121226
  Transmission Date: 20130627
  Serious: Yes (Other)
  Sender: FDA-Public Use
  Company Number: IL-PFIZER INC-2012298378

PATIENT
  Age: 50 Year
  Sex: Male

DRUGS (4)
  1. EDRONAX [Suspect]
     Indication: POST-TRAUMATIC STRESS DISORDER
     Dosage: 8 mg, 1x/day
     Route: 048
  2. EDRONAX [Suspect]
     Indication: DEPRESSION
  3. EFEXOR XR [Suspect]
     Indication: POST-TRAUMATIC STRESS DISORDER
     Dosage: 150 mg, 1x/day
     Route: 048
  4. EFEXOR XR [Suspect]
     Indication: DEPRESSION

REACTIONS (7)
  - Anal abscess [Recovered/Resolved with Sequelae]
  - Anal injury [Recovered/Resolved with Sequelae]
  - Anal fissure [Recovered/Resolved with Sequelae]
  - Faecal incontinence [Recovered/Resolved with Sequelae]
  - Mental disorder [Recovered/Resolved with Sequelae]
  - Diarrhoea [Recovered/Resolved with Sequelae]
  - Constipation [Recovered/Resolved with Sequelae]
